FAERS Safety Report 8962558 (Version 2)
Quarter: 2013Q1

REPORT INFORMATION
  Report Type: Spontaneous
  Country: US (occurrence: None)
  Receive Date: 20121205
  Receipt Date: 20130118
  Transmission Date: 20140127
  Serious: Yes (Other)
  Sender: FDA-Public Use
  Company Number: 2012-004217

PATIENT
  Age: 77 Year
  Sex: Male

DRUGS (9)
  1. ACTONEL [Suspect]
     Indication: OSTEOPOROSIS
     Dosage: UNK UNK, UNKNOWN, ORAL
     Route: 048
     Dates: start: 201109, end: 201210
  2. TERAZOSIN (TERAZOSIN) [Concomitant]
  3. SIMVASTATIN (SIMVASTATIN) [Concomitant]
  4. LISINOPRIL (LISINOPRIL) [Concomitant]
  5. FLONASE (FLUTICASONE PROPIONATE) [Concomitant]
  6. CELEBREX (CELECOXIB) [Concomitant]
  7. CEPHALEXIN /00145501/ (CEFALEXIN) [Concomitant]
  8. GLUCOSAMINE (GLUCOSAMINE) [Concomitant]
  9. ASPIRIN (ACETYLSALICYLIC ACID) [Concomitant]

REACTIONS (4)
  - Arthropathy [None]
  - Tooth disorder [None]
  - Compression fracture [None]
  - Knee arthroplasty [None]
